FAERS Safety Report 6571208-4 (Version None)
Quarter: 2010Q1

REPORT INFORMATION
  Report Type: 
  Country: None (occurrence: None)
  Receive Date: 20100129
  Receipt Date: 20100113
  Transmission Date: 20100710
  Serious: Yes (Death)
  Sender: FDA-Public Use
  Company Number: 2009AC000397

PATIENT
  Age: 67 Year
  Sex: Male

DRUGS (14)
  1. DIGOXIN [Suspect]
     Dosage: 0.25 MG;QD;UNK
     Dates: start: 20060707
  2. LISINOPRIL [Concomitant]
  3. PHENOBARBITAL TAB [Concomitant]
  4. KLONOPIN [Concomitant]
  5. DILANTIN [Concomitant]
  6. FUROSEMIDE [Concomitant]
  7. POTASSIUM [Concomitant]
  8. NORCO [Concomitant]
  9. SOTALOL [Concomitant]
  10. COUMADIN [Concomitant]
  11. ZOCOR [Concomitant]
  12. FENTANYL [Concomitant]
  13. PREVACID [Concomitant]
  14. REGLAN [Concomitant]

REACTIONS (10)
  - ATRIAL FIBRILLATION [None]
  - CONVULSION [None]
  - CORONARY ARTERY DISEASE [None]
  - ECONOMIC PROBLEM [None]
  - HUMERUS FRACTURE [None]
  - HYPERCHOLESTEROLAEMIA [None]
  - ILL-DEFINED DISORDER [None]
  - MULTIPLE INJURIES [None]
  - OEDEMA PERIPHERAL [None]
  - TACHYCARDIA [None]
